FAERS Safety Report 5378643-0 (Version None)
Quarter: 2007Q3

REPORT INFORMATION
  Report Type: 
  Country: None (occurrence: None)
  Receive Date: 20070702
  Receipt Date: 20070702
  Transmission Date: 20080115
  Serious: Yes (Other)
  Sender: FDA-Public Use
  Company Number: None

PATIENT
  Sex: Female

DRUGS (5)
  1. TOPAMAX [Suspect]
     Indication: BIPOLAR I DISORDER
     Dosage: 100 MG QHS PO
     Route: 048
     Dates: start: 20070410, end: 20070629
  2. ATIVAN [Concomitant]
  3. RITALIN [Concomitant]
  4. DOXEPIN HCL [Concomitant]
  5. MELLARIL [Concomitant]

REACTIONS (1)
  - ALOPECIA [None]
